FAERS Safety Report 12932076 (Version 3)
Quarter: 2017Q3

REPORT INFORMATION
  Report Type: Spontaneous
  Country: US (occurrence: US)
  Receive Date: 20161111
  Receipt Date: 20170903
  Transmission Date: 20171127
  Serious: No
  Sender: FDA-Public Use
  Company Number: US-BIOGEN-2016BI00315429

PATIENT
  Age: 48 Year
  Sex: Female

DRUGS (1)
  1. TECFIDERA [Suspect]
     Active Substance: DIMETHYL FUMARATE
     Indication: MULTIPLE SCLEROSIS
     Route: 048
     Dates: start: 20130515, end: 20160615

REACTIONS (12)
  - Visual impairment [Unknown]
  - Alopecia [Unknown]
  - Fatigue [Recovered/Resolved]
  - Vision blurred [Not Recovered/Not Resolved]
  - Optic neuritis [Recovered/Resolved]
  - Confusional state [Recovered/Resolved]
  - Drug ineffective [Not Recovered/Not Resolved]
  - Balance disorder [Recovered/Resolved]
  - Multiple sclerosis relapse [Unknown]
  - Visual field defect [Unknown]
  - Dysphagia [Recovered/Resolved]
  - Libido disorder [Unknown]

NARRATIVE: CASE EVENT DATE: 201609
